FAERS Safety Report 19605063 (Version 7)
Quarter: 2022Q2

REPORT INFORMATION
  Report Type: Report from Study
  Country: CA (occurrence: CA)
  Receive Date: 20210723
  Receipt Date: 20220418
  Transmission Date: 20220721
  Serious: Yes (Other)
  Sender: FDA-Public Use
  Company Number: CA-JNJFOC-20210742297

PATIENT
  Age: 49 Year
  Sex: Female
  Weight: 82.9 kg

DRUGS (3)
  1. REMICADE [Suspect]
     Active Substance: INFLIXIMAB
     Indication: Crohn^s disease
     Dosage: LAST DOSE RECEIVED ON 17-SEP-2021
     Route: 042
     Dates: start: 20121230, end: 20210917
  2. REMICADE [Suspect]
     Active Substance: INFLIXIMAB
     Dosage: RESUMPTION OF TREATMENT
     Route: 042
  3. MINERALS\VITAMINS [Concomitant]
     Active Substance: MINERALS\VITAMINS
     Indication: Product used for unknown indication
     Route: 048

REACTIONS (6)
  - Breast cancer [Unknown]
  - Crohn^s disease [Unknown]
  - Stress [Unknown]
  - Vertigo positional [Recovering/Resolving]
  - Off label use [Unknown]
  - Incorrect dose administered [Unknown]

NARRATIVE: CASE EVENT DATE: 20210714
